FAERS Safety Report 7738497-1 (Version None)
Quarter: 2011Q3

REPORT INFORMATION
  Report Type: 
  Country: None (occurrence: None)
  Receive Date: 20110908
  Receipt Date: 20110825
  Transmission Date: 20111222
  Serious: Yes (Death)
  Sender: FDA-Public Use
  Company Number: DE-ENDO PHARMACEUTICALS INC.-VANT20110049

PATIENT
  Sex: Male

DRUGS (1)
  1. VANTAS [Suspect]
     Indication: PROSTATE CANCER
     Route: 058

REACTIONS (2)
  - CARDIOVASCULAR INSUFFICIENCY [None]
  - PROSTATE CANCER [None]
